FAERS Safety Report 24647055 (Version 2)
Quarter: 2024Q4

REPORT INFORMATION
  Report Type: Spontaneous
  Country: CA (occurrence: CA)
  Receive Date: 20241121
  Receipt Date: 20241128
  Transmission Date: 20250115
  Serious: Yes (Hospitalization)
  Sender: PFIZER
  Company Number: CA-PFIZER INC-202400304238

PATIENT
  Age: 80 Year
  Sex: Male
  Weight: 113 kg

DRUGS (3)
  1. SULFASALAZINE [Suspect]
     Active Substance: SULFASALAZINE
     Indication: Colitis ulcerative
     Dosage: 1.2 G X 4 TABS (FOR 1 YEAR - STOPPED)
     Dates: start: 202311, end: 202411
  2. PREDNISONE [Concomitant]
     Active Substance: PREDNISONE
     Dosage: 40 MG, 1X/DAY (TAPERING DOWN WEEKLY TO 0 MG)
     Dates: start: 2024
  3. INFLECTRA [Concomitant]
     Active Substance: INFLIXIMAB-DYYB
     Indication: Crohn^s disease
     Dosage: 565 MG W 0, 2, 6 THEN EVERY 8 WEEKS (WEEK 0 DOSE )
     Route: 042
     Dates: start: 20241113

REACTIONS (3)
  - Crohn^s disease [Unknown]
  - COVID-19 [Unknown]
  - Drug ineffective [Unknown]

NARRATIVE: CASE EVENT DATE: 20241017
